FAERS Safety Report 13290744 (Version 1)
Quarter: 2017Q1

REPORT INFORMATION
  Report Type: Spontaneous
  Country: US (occurrence: US)
  Receive Date: 20170303
  Receipt Date: 20170303
  Transmission Date: 20170428
  Serious: No
  Sender: FDA-Public Use
  Company Number: US-PFIZER INC-2017086424

PATIENT
  Age: 87 Year
  Sex: Female

DRUGS (5)
  1. TYLENOL EXTRA STRENGTH [Suspect]
     Active Substance: ACETAMINOPHEN
     Dosage: UNK
  2. IBUPROFEN. [Suspect]
     Active Substance: IBUPROFEN
     Dosage: UNK
  3. TRAMADOL. [Suspect]
     Active Substance: TRAMADOL
     Dosage: UNK
  4. MOTRIN [Suspect]
     Active Substance: IBUPROFEN
     Dosage: UNK
  5. VOLTAREN [Suspect]
     Active Substance: DICLOFENAC SODIUM
     Dosage: UNK

REACTIONS (1)
  - Drug ineffective [Unknown]
